FAERS Safety Report 7827555-9 (Version None)
Quarter: 2011Q4

REPORT INFORMATION
  Report Type: 
  Country: None (occurrence: None)
  Receive Date: 20111020
  Receipt Date: 20111017
  Transmission Date: 20120403
  Serious: Yes (Death)
  Sender: FDA-Public Use
  Company Number: PHEH2011US07125

PATIENT
  Sex: Male

DRUGS (10)
  1. WARFARIN SODIUM [Concomitant]
     Dosage: UNK,
  2. EXELON [Suspect]
     Dosage: 9.5 MG, 1 PATCH PER DAY
     Route: 062
  3. DIGOXIN [Concomitant]
     Dosage: UNK,
  4. GEMFIBROZIL [Concomitant]
     Dosage: UNK,
  5. PROSCAR [Concomitant]
     Dosage: UNK UKN, UNK
  6. ENALAPRIL MALEATE [Concomitant]
     Dosage: UNK,
  7. OMEPRAZOLE [Concomitant]
     Dosage: UNK,
  8. POTASSIUM CHLORIDE [Concomitant]
     Dosage: UNK,
  9. METOPROLOL TARTRATE [Concomitant]
     Dosage: UNK,
  10. FUROSEMIDE [Concomitant]
     Dosage: UNK,

REACTIONS (1)
  - DEATH [None]
